FAERS Safety Report 9110516 (Version 1)
Quarter: 2013Q1

REPORT INFORMATION
  Report Type: Spontaneous
  Country: US (occurrence: US)
  Receive Date: 20130222
  Receipt Date: 20130222
  Transmission Date: 20140127
  Serious: Yes (Other)
  Sender: FDA-Public Use
  Company Number: US-RB-050012-13

PATIENT
  Age: 33 Year
  Sex: Male

DRUGS (4)
  1. MUCINEX DM (GUAIFENESIN) [Suspect]
     Indication: SINUSITIS
     Route: 048
     Dates: end: 201203
  2. MUCINEX DM (DEXTROMETHORPHAN HYDROBROMIDE) [Suspect]
  3. MUCINEX DM MAXIMUM STRENGTH (GUAIFENESIN) [Suspect]
     Indication: SINUSITIS
     Route: 048
     Dates: start: 201101
  4. MUCINEX DM MAXIMUM STRENGTH (DEXTROMETHORPHAN HYDROBROMIDE) [Suspect]

REACTIONS (4)
  - Delirium [Recovered/Resolved]
  - Euphoric mood [Recovered/Resolved]
  - Confusional state [Recovered/Resolved]
  - Incorrect drug administration duration [Recovered/Resolved]
